FAERS Safety Report 24086013 (Version 1)
Quarter: 2024Q3

REPORT INFORMATION
  Report Type: Spontaneous
  Country: ZA (occurrence: None)
  Receive Date: 20240712
  Receipt Date: 20240712
  Transmission Date: 20241016
  Serious: Yes (Death)
  Sender: ASTRAZENECA
  Company Number: 2024A157205

PATIENT
  Age: 73 Year
  Sex: Female

DRUGS (7)
  1. BUDESONIDE\FORMOTEROL [Suspect]
     Active Substance: BUDESONIDE\FORMOTEROL
     Indication: Asthma
     Dosage: 120 DOSE 160/4.5 MCG, UNKNOWN UNKNOWN
     Route: 055
  2. ESOMEPRAZOLE MAGNESIUM [Concomitant]
     Active Substance: ESOMEPRAZOLE MAGNESIUM
  3. ASPELONE [Concomitant]
  4. BUDESONIDE [Concomitant]
     Active Substance: BUDESONIDE
  5. ERGOCALCIFEROL [Concomitant]
     Active Substance: ERGOCALCIFEROL
  6. ARCOXIA [Concomitant]
     Active Substance: ETORICOXIB
  7. PENDINE [Concomitant]

REACTIONS (1)
  - Neoplasm malignant [Fatal]

NARRATIVE: CASE EVENT DATE: 20240510
